FAERS Safety Report 19456140 (Version 10)
Quarter: 2022Q1

REPORT INFORMATION
  Report Type: Other
  Country: AT (occurrence: None)
  Receive Date: 20210624
  Receipt Date: 20220316
  Transmission Date: 20220424
  Serious: Yes (Hospitalization)
  Sender: FDA-Public Use
  Company Number: AT-ROCHE-2690882

PATIENT
  Age: 53 Year
  Sex: Female
  Weight: 72 kg

DRUGS (51)
  1. ATEZOLIZUMAB [Suspect]
     Active Substance: ATEZOLIZUMAB
     Indication: Non-small cell lung cancer
     Dosage: VISIT 1?ON 27/MAR/2020, 25/MAY/2020, 15/JUN/2020, 06/JUL/2020, 27/JUL/2020, 17/AUG/2020, 07/SEP/2020
     Route: 041
     Dates: start: 20200417
  2. ATEZOLIZUMAB [Suspect]
     Active Substance: ATEZOLIZUMAB
     Dosage: RECEIVED BEFORE SIGNING THE INFORMED CONSENT
     Route: 041
     Dates: start: 20200327
  3. PANTOPRAZOLE SODIUM [Concomitant]
     Active Substance: PANTOPRAZOLE SODIUM
     Indication: Prophylaxis
     Dates: start: 201911
  4. EUTHYROX [Concomitant]
     Active Substance: LEVOTHYROXINE SODIUM
     Indication: Autoimmune thyroiditis
  5. ZOLPIDEM TARTRATE [Concomitant]
     Active Substance: ZOLPIDEM TARTRATE
     Indication: Prophylaxis
     Dates: end: 20210913
  6. DRONABINOL [Concomitant]
     Active Substance: DRONABINOL
     Indication: Prophylaxis
  7. HYDROMORPHONE HYDROCHLORIDE [Concomitant]
     Active Substance: HYDROMORPHONE HYDROCHLORIDE
     Indication: Prophylaxis
     Dates: end: 20210602
  8. HYDROMORPHONE HYDROCHLORIDE [Concomitant]
     Active Substance: HYDROMORPHONE HYDROCHLORIDE
     Indication: Prophylaxis
     Dates: end: 20210602
  9. CIPRALEX [Concomitant]
     Active Substance: ESCITALOPRAM OXALATE
     Indication: Prophylaxis
     Dates: start: 20210323
  10. ALPRAZOLAM [Concomitant]
     Active Substance: ALPRAZOLAM
     Indication: Prophylaxis
     Dates: end: 20200727
  11. PARACODIN [Concomitant]
     Indication: Acute respiratory failure
     Dates: start: 20190426
  12. MORPHINE [Concomitant]
     Active Substance: MORPHINE
     Indication: Dyspnoea
     Dates: start: 202002, end: 20210602
  13. ZOFRAN [Concomitant]
     Active Substance: ONDANSETRON HYDROCHLORIDE
     Indication: Prophylaxis
  14. FOSTER [Concomitant]
     Active Substance: BECLOMETHASONE\FORMOTEROL
     Dates: start: 202002, end: 20200727
  15. FENOTEROL HYDROBROMIDE\IPRATROPIUM BROMIDE [Concomitant]
     Active Substance: FENOTEROL HYDROBROMIDE\IPRATROPIUM BROMIDE
     Dates: start: 202002
  16. NOVALGIN (AUSTRIA) [Concomitant]
     Indication: Prophylaxis
     Dates: start: 202002, end: 20210602
  17. XGEVA [Concomitant]
     Active Substance: DENOSUMAB
     Indication: Prophylaxis
     Dates: start: 20200313, end: 20210916
  18. CALCIUM CARBONATE\CHOLECALCIFEROL [Concomitant]
     Active Substance: CALCIUM CARBONATE\CHOLECALCIFEROL
     Indication: Prophylaxis
     Dates: start: 20200327, end: 20211111
  19. DEXAMETHASONE [Concomitant]
     Active Substance: DEXAMETHASONE
     Dates: start: 20200525, end: 20201014
  20. DEXAMETHASONE [Concomitant]
     Active Substance: DEXAMETHASONE
     Dates: start: 20201229, end: 20210119
  21. FRAGMIN [Concomitant]
     Active Substance: DALTEPARIN SODIUM
     Dates: start: 20200414, end: 20200419
  22. EDOXABAN TOSYLATE [Concomitant]
     Active Substance: EDOXABAN TOSYLATE
     Dates: start: 20200420
  23. MYCOSTATIN [Concomitant]
     Active Substance: NYSTATIN
     Indication: Oral candidiasis
     Dates: start: 20200706, end: 20200928
  24. BETAISODONA [Concomitant]
     Active Substance: POVIDONE-IODINE
     Dates: start: 20200727, end: 20200817
  25. ERYTHROCYTES, CONCENTRATED [Concomitant]
     Dates: start: 20211118, end: 20211118
  26. CARBOPLATIN [Concomitant]
     Active Substance: CARBOPLATIN
     Indication: Neoplasm malignant
     Dates: start: 20210929
  27. NAVELBINE [Concomitant]
     Active Substance: VINORELBINE TARTRATE
     Indication: Neoplasm malignant
  28. MORPHINE [Concomitant]
     Active Substance: MORPHINE
     Dates: start: 20200817
  29. DEXPANTHENOL [Concomitant]
     Active Substance: DEXPANTHENOL
     Dates: start: 20200817
  30. LYRICA [Concomitant]
     Active Substance: PREGABALIN
     Dates: start: 20210205
  31. TIZANIDINE [Concomitant]
     Active Substance: TIZANIDINE
     Dates: start: 20210209, end: 20210211
  32. LASIX [Concomitant]
     Active Substance: FUROSEMIDE
     Indication: Dyspnoea
     Dates: start: 20210209, end: 20210209
  33. AVELOX [Concomitant]
     Active Substance: MOXIFLOXACIN HYDROCHLORIDE
     Dates: start: 20210205, end: 20210211
  34. BISOPROLOL FUMARATE [Concomitant]
     Active Substance: BISOPROLOL FUMARATE
     Indication: Prophylaxis
     Dates: start: 20210218
  35. DICLOFENAC SODIUM\ORPHENADRINE CITRATE [Concomitant]
     Active Substance: DICLOFENAC SODIUM\ORPHENADRINE CITRATE
     Dates: start: 20210415, end: 20210415
  36. AMITRIPTYLINE [Concomitant]
     Active Substance: AMITRIPTYLINE
     Dates: start: 20210323, end: 20210323
  37. AMITRIPTYLINE [Concomitant]
     Active Substance: AMITRIPTYLINE
     Dates: start: 20210330, end: 20210405
  38. AMITRIPTYLINE [Concomitant]
     Active Substance: AMITRIPTYLINE
     Dates: start: 20210406
  39. OXYGEROLAN [Concomitant]
     Dates: start: 20210602
  40. OXYGEROLAN [Concomitant]
     Dates: start: 20210602
  41. DIPYRONE [Concomitant]
     Active Substance: DIPYRONE
     Dates: start: 20210602
  42. ASCORBIC ACID\CALCIUM PHOSPHATE\CHOLECALCIFEROL\CITRIC ACID MONOHYDRAT [Concomitant]
     Active Substance: ASCORBIC ACID\CALCIUM PHOSPHATE\CHOLECALCIFEROL\CITRIC ACID MONOHYDRATE
     Indication: Prophylaxis
     Dosage: 500MG/800IE
     Dates: start: 20211111
  43. SYMBICORT [Concomitant]
     Active Substance: BUDESONIDE\FORMOTEROL FUMARATE DIHYDRATE
     Dates: start: 20200727, end: 20210119
  44. PASPERTIN [Concomitant]
     Dates: start: 20210205
  45. ENTEROBENE [Concomitant]
     Dates: start: 20210205
  46. OLODATEROL HYDROCHLORIDE\TIOTROPIUM BROMIDE MONOHYDRATE [Concomitant]
     Active Substance: OLODATEROL HYDROCHLORIDE\TIOTROPIUM BROMIDE MONOHYDRATE
     Dates: start: 20210906
  47. FERRETAB [Concomitant]
     Dates: start: 20210906
  48. ARANESP [Concomitant]
     Active Substance: DARBEPOETIN ALFA
     Dosage: 150MCG
     Dates: start: 20210916
  49. NEULASTA [Concomitant]
     Active Substance: PEGFILGRASTIM
     Dates: start: 20211209
  50. OXYGEROLAN [Concomitant]
     Dates: start: 20210602
  51. OXYGEROLAN [Concomitant]
     Dates: start: 20210602

REACTIONS (7)
  - Peripheral embolism [Recovering/Resolving]
  - Colitis [Recovered/Resolved with Sequelae]
  - Clostridium difficile infection [Recovering/Resolving]
  - Weight decreased [Not Recovered/Not Resolved]
  - Diarrhoea [Recovered/Resolved]
  - Colitis [Recovering/Resolving]
  - Tension headache [Unknown]

NARRATIVE: CASE EVENT DATE: 20200414
